FAERS Safety Report 8717547 (Version 2)
Quarter: 2013Q4

REPORT INFORMATION
  Report Type: Spontaneous
  Country: US (occurrence: US)
  Receive Date: 20120810
  Receipt Date: 20131105
  Transmission Date: 20140711
  Serious: Yes (Other)
  Sender: FDA-Public Use
  Company Number: US-009507513-1207USA012056

PATIENT
  Sex: Male

DRUGS (3)
  1. VICTRELIS [Suspect]
     Dosage: 4 DF, UNK
     Route: 048
  2. PEGASYS [Suspect]
  3. REBETOL [Suspect]
     Dosage: 2 DF AM AND 3 DF PM

REACTIONS (7)
  - Chest discomfort [Unknown]
  - Dizziness [Unknown]
  - Blood pressure increased [Unknown]
  - Malaise [Unknown]
  - Asthenia [Unknown]
  - Renal pain [Unknown]
  - Anaemia [Unknown]
